FAERS Safety Report 21466553 (Version 3)
Quarter: 2023Q1

REPORT INFORMATION
  Report Type: Report from Study
  Country: US (occurrence: US)
  Receive Date: 20221017
  Receipt Date: 20230312
  Transmission Date: 20230418
  Serious: Yes (Death, Hospitalization, Other)
  Sender: FDA-Public Use
  Company Number: US-ABBVIE-4162228

PATIENT
  Age: 74 Year
  Sex: Male

DRUGS (1)
  1. HUMIRA [Suspect]
     Active Substance: ADALIMUMAB
     Indication: Ankylosing spondylitis
     Dosage: CITRATE FREE
     Route: 058
     Dates: start: 20220901, end: 20230216

REACTIONS (7)
  - Multiple organ dysfunction syndrome [Fatal]
  - Escherichia infection [Recovered/Resolved]
  - Escherichia infection [Recovered/Resolved]
  - Diarrhoea [Unknown]
  - Cystitis [Not Recovered/Not Resolved]
  - Appendicitis [Not Recovered/Not Resolved]
  - Sepsis [Not Recovered/Not Resolved]

NARRATIVE: CASE EVENT DATE: 20220910
